FAERS Safety Report 16030131 (Version 1)
Quarter: 2019Q1

REPORT INFORMATION
  Report Type: Spontaneous
  Country: US (occurrence: US)
  Receive Date: 20190304
  Receipt Date: 20190304
  Transmission Date: 20190418
  Serious: No
  Sender: FDA-Public Use
  Company Number: US-B.I. PHARMACEUTICALS,INC./RIDGEFIELD-2019-BI-007500

PATIENT
  Sex: Female

DRUGS (1)
  1. STIOLTO RESPIMAT [Suspect]
     Active Substance: OLODATEROL HYDROCHLORIDE\TIOTROPIUM BROMIDE MONOHYDRATE
     Indication: PRODUCT USED FOR UNKNOWN INDICATION
     Dosage: FORM STRENGTH: 2.5 MCG; FORMULATION: INHALATION SPRAY? ?ACTION(S) TAKEN WITH PRODUCT: NOT REPORTED
     Route: 055

REACTIONS (10)
  - Heart rate irregular [Unknown]
  - Vision blurred [Unknown]
  - Nausea [Unknown]
  - Vomiting [Unknown]
  - Heart rate increased [Unknown]
  - Dizziness [Unknown]
  - Malaise [Unknown]
  - Confusional state [Unknown]
  - Headache [Unknown]
  - Feeling abnormal [Unknown]

NARRATIVE: CASE EVENT DATE: 20190118
